FAERS Safety Report 8784848 (Version 1)
Quarter: 2012Q4

REPORT INFORMATION
  Report Type: Spontaneous
  Country: FR (occurrence: None)
  Receive Date: 20120828
  Receipt Date: 20120828
  Transmission Date: 20130627
  Serious: Yes (Death)
  Sender: FDA-Public Use
  Company Number: DSA_59058_2012

PATIENT

DRUGS (6)
  1. FLUOROURACIL (FLUOROURACIL) [Suspect]
     Indication: ADENOCARCINOMA
     Dosage: Every other week Intravenous bolus), (2400 mg/m2; 46 hour infusion; Every other week)
     Route: 040
  2. FLUOROURACIL (FLUOROURACIL) [Suspect]
     Indication: ADENOCARCINOMA
  3. IRINOTECAN [Suspect]
     Indication: ADENOCARCINOMA
     Dosage: Over 90 minutes; Every other week Intravenous (not otherwise specified))
     Route: 042
  4. CALCIUM FOLINATE [Suspect]
     Indication: ADENOCARCINOMA
     Dosage: Over two hours; Every other week Intravenous (not otherwise specified))
     Route: 042
  5. .ALPHA.-GLUCOSIDASE [Concomitant]
  6. METHYLPREDNISOLONE (UNKNOWN) [Concomitant]

REACTIONS (3)
  - Diarrhoea [None]
  - Dehydration [None]
  - Confusional state [None]
